FAERS Safety Report 4380980-3 (Version None)
Quarter: 2004Q2

REPORT INFORMATION
  Report Type: 
  Country: None (occurrence: None)
  Receive Date: 20040614
  Receipt Date: 20040531
  Transmission Date: 20050107
  Serious: Yes (Hospitalization)
  Sender: FDA-Public Use
  Company Number: HQWYE449013APR04

PATIENT
  Age: 59 Year
  Sex: Male

DRUGS (5)
  1. RAPAMUNE [Suspect]
     Indication: PROPHYLAXIS AGAINST TRANSPLANT REJECTION
     Dosage: 5 MG 1X PER 24 HR
     Dates: start: 20040120, end: 20040428
  2. CELLCEPT [Concomitant]
  3. SODIUM BICARBONATE IN PLASTIC CONTAINER [Concomitant]
  4. INSULIN [Concomitant]
  5. PENTOXIFYLLINE [Concomitant]

REACTIONS (6)
  - COMPLICATIONS OF TRANSPLANTED KIDNEY [None]
  - DYSPNOEA [None]
  - FACIAL PALSY [None]
  - HYPERCHOLESTEROLAEMIA [None]
  - NEPHROTIC SYNDROME [None]
  - SCIATICA [None]
